FAERS Safety Report 4305703-5 (Version None)
Quarter: 2004Q1

REPORT INFORMATION
  Report Type: 
  Country: None (occurrence: None)
  Receive Date: 20040223
  Receipt Date: 20031118
  Transmission Date: 20041129
  Serious: No
  Sender: FDA-Public Use
  Company Number: SU-2003-001937

PATIENT
  Age: 76 Year
  Sex: Male
  Weight: 77.5651 kg

DRUGS (6)
  1. BENICAR [Suspect]
     Indication: HYPERTENSION
     Dosage: 20 MG QD PO
     Route: 048
     Dates: start: 20021028, end: 20031102
  2. FOSINOPRIL SODIUM [Concomitant]
  3. PRAVACHOL [Concomitant]
  4. ZETIA [Concomitant]
  5. SPIRONOLACTONE [Concomitant]
  6. PLAVIX [Concomitant]

REACTIONS (7)
  - BLOOD AMYLASE ABNORMAL [None]
  - BLOOD PRESSURE DECREASED [None]
  - CARCINOEMBRYONIC ANTIGEN INCREASED [None]
  - DYSPNOEA [None]
  - LABILE BLOOD PRESSURE [None]
  - LIPASE ABNORMAL [None]
  - RHINORRHOEA [None]
